FAERS Safety Report 9592290 (Version 3)
Quarter: 2013Q4

REPORT INFORMATION
  Report Type: Spontaneous
  Country: US (occurrence: US)
  Receive Date: 20131004
  Receipt Date: 20131121
  Transmission Date: 20140711
  Serious: Yes (Other)
  Sender: FDA-Public Use
  Company Number: US-BAXTER-2013BAX038272

PATIENT
  Age: 60 Year
  Sex: Female

DRUGS (4)
  1. DIANEAL LOW CALCIUM [Suspect]
     Indication: RENAL FAILURE CHRONIC
     Route: 033
     Dates: start: 20121219
  2. DIANEAL LOW CALCIUM [Suspect]
     Route: 033
     Dates: start: 20121219
  3. DIANEAL LOW CALCIUM [Suspect]
     Indication: RENAL FAILURE CHRONIC
     Route: 033
     Dates: start: 20121219
  4. DIANEAL LOW CALCIUM [Suspect]
     Route: 033
     Dates: start: 20121219

REACTIONS (5)
  - Malignant melanoma [Unknown]
  - Blood glucose increased [Recovering/Resolving]
  - Hypotension [Recovering/Resolving]
  - Dehydration [Recovering/Resolving]
  - Abdominal pain [Recovered/Resolved]
